FAERS Safety Report 10432753 (Version 1)
Quarter: 2014Q3

REPORT INFORMATION
  Report Type: Spontaneous
  Country: US (occurrence: US)
  Receive Date: 20140905
  Receipt Date: 20140905
  Transmission Date: 20150326
  Serious: No
  Sender: FDA-Public Use
  Company Number: US-MYLAN-2014S1014472

PATIENT
  Sex: Female

DRUGS (1)
  1. DESLORATADINE. [Suspect]
     Active Substance: DESLORATADINE
     Indication: MULTIPLE ALLERGIES

REACTIONS (2)
  - Multiple allergies [Not Recovered/Not Resolved]
  - Drug ineffective [Not Recovered/Not Resolved]
